FAERS Safety Report 8029269-1 (Version None)
Quarter: 2012Q1

REPORT INFORMATION
  Report Type: 
  Country: None (occurrence: None)
  Receive Date: 20120106
  Receipt Date: 20120104
  Transmission Date: 20120608
  Serious: Yes (Death)
  Sender: FDA-Public Use
  Company Number: GW-ABBOTT-12P-071-0889182-00

PATIENT
  Sex: Female
  Weight: 34 kg

DRUGS (8)
  1. FOLIC ACID [Concomitant]
     Indication: VITAMIN SUPPLEMENTATION
     Route: 048
     Dates: start: 20111114, end: 20111125
  2. COTRIM [Concomitant]
     Indication: PNEUMONIA
     Route: 048
     Dates: start: 20111114, end: 20111125
  3. ABACAVIR [Concomitant]
     Indication: HIV INFECTION
     Route: 048
     Dates: start: 20111114, end: 20111125
  4. LAMIVUDINE [Concomitant]
     Indication: HIV INFECTION
     Route: 048
     Dates: start: 20111114, end: 20111125
  5. FLUCONAZOLE [Concomitant]
     Indication: PROPHYLAXIS
     Route: 048
     Dates: start: 20111114, end: 20111125
  6. AUGMENTIN '125' [Concomitant]
     Indication: PROPHYLAXIS
     Route: 048
     Dates: start: 20111114, end: 20111125
  7. ACETAMINOPHEN [Concomitant]
     Indication: PROPHYLAXIS
     Route: 048
     Dates: start: 20111114, end: 20111125
  8. KALETRA [Suspect]
     Indication: HIV INFECTION
     Dosage: 200MG/50MG
     Route: 048
     Dates: start: 20111114, end: 20111125

REACTIONS (4)
  - DEATH [None]
  - CACHEXIA [None]
  - RALES [None]
  - ORAL CANDIDIASIS [None]
